FAERS Safety Report 21749360 (Version 4)
Quarter: 2023Q1

REPORT INFORMATION
  Report Type: Report from Study
  Country: GB (occurrence: GB)
  Receive Date: 20221219
  Receipt Date: 20230213
  Transmission Date: 20230418
  Serious: Yes (Death, Hospitalization, Other)
  Sender: FDA-Public Use
  Company Number: GB-ROCHE-3235339

PATIENT
  Age: 67 Year
  Sex: Female

DRUGS (50)
  1. EXEMESTANE [Suspect]
     Active Substance: EXEMESTANE
     Indication: Breast cancer metastatic
     Dosage: 31/MAY/2016
     Route: 048
     Dates: start: 20160531, end: 20160610
  2. EXEMESTANE [Suspect]
     Active Substance: EXEMESTANE
     Dosage: LAST DOSE ON 12/JUL/2016
     Route: 048
     Dates: start: 20160712, end: 20160712
  3. PACLITAXEL [Suspect]
     Active Substance: PACLITAXEL
     Indication: Breast cancer metastatic
     Dosage: 22/NOV/2016
     Route: 042
     Dates: start: 20151124, end: 20151221
  4. PACLITAXEL [Suspect]
     Active Substance: PACLITAXEL
     Indication: Triple negative breast cancer
     Dosage: 141 MG
     Route: 042
     Dates: start: 20161122
  5. PACLITAXEL [Suspect]
     Active Substance: PACLITAXEL
     Dosage: UNK
     Route: 065
     Dates: start: 20161124
  6. CARBOPLATIN [Suspect]
     Active Substance: CARBOPLATIN
     Indication: Triple negative breast cancer
     Dosage: UNK
  7. DOXORUBICIN [Suspect]
     Active Substance: DOXORUBICIN
     Indication: Triple negative breast cancer
  8. DOXORUBICIN [Suspect]
     Active Substance: DOXORUBICIN
     Route: 065
  9. FLUOROURACIL [Suspect]
     Active Substance: FLUOROURACIL
     Indication: Triple negative breast cancer
  10. FLUOROURACIL [Suspect]
     Active Substance: FLUOROURACIL
     Route: 065
  11. GEMCITABINE HYDROCHLORIDE [Suspect]
     Active Substance: GEMCITABINE HYDROCHLORIDE
     Indication: Triple negative breast cancer
  12. EPIRUBICIN HYDROCHLORIDE [Suspect]
     Active Substance: EPIRUBICIN HYDROCHLORIDE
     Indication: Triple negative breast cancer
  13. CYCLOPHOSPHAMIDE [Suspect]
     Active Substance: CYCLOPHOSPHAMIDE
     Indication: Triple negative breast cancer
     Dosage: UNK
  14. CYCLOPHOSPHAMIDE [Suspect]
     Active Substance: CYCLOPHOSPHAMIDE
     Route: 065
  15. ERIBULIN MESYLATE [Suspect]
     Active Substance: ERIBULIN MESYLATE
     Indication: Triple negative breast cancer
  16. ERIBULIN MESYLATE [Suspect]
     Active Substance: ERIBULIN MESYLATE
     Dosage: UNK
     Route: 065
  17. PEGVORHYALURONIDASE ALFA [Suspect]
     Active Substance: PEGVORHYALURONIDASE ALFA
     Indication: HER2 positive breast cancer
     Dosage: 600 MG, EVERY 3 WEEKS
     Dates: start: 20151124
  18. PEGVORHYALURONIDASE ALFA [Suspect]
     Active Substance: PEGVORHYALURONIDASE ALFA
     Dosage: UNK
     Dates: start: 20160531
  19. PEGVORHYALURONIDASE ALFA [Suspect]
     Active Substance: PEGVORHYALURONIDASE ALFA
     Dosage: 31/MAY/2016
     Route: 065
  20. PEGVORHYALURONIDASE ALFA [Suspect]
     Active Substance: PEGVORHYALURONIDASE ALFA
     Dosage: 24/NOV/2015
     Route: 065
  21. ADALIMUMAB [Suspect]
     Active Substance: ADALIMUMAB
     Indication: Product used for unknown indication
     Dosage: 40 MG, Q2W
     Route: 058
     Dates: start: 20151124
  22. ADALIMUMAB [Suspect]
     Active Substance: ADALIMUMAB
     Dosage: CUMULATIVE DOSE TO FIRST REACTION (NUMBER)  440
  23. ADALIMUMAB [Suspect]
     Active Substance: ADALIMUMAB
     Dosage: 24/NOV/2015
     Route: 058
  24. ADALIMUMAB [Suspect]
     Active Substance: ADALIMUMAB
     Dosage: 24/NOV/2015
     Route: 058
  25. ADALIMUMAB [Suspect]
     Active Substance: ADALIMUMAB
     Dosage: 24/NOV/2015
     Route: 058
  26. ADALIMUMAB [Suspect]
     Active Substance: ADALIMUMAB
     Dosage: 24/NOV/2015
     Route: 058
  27. CAPECITABINE [Suspect]
     Active Substance: CAPECITABINE
     Indication: Breast cancer metastatic
     Dosage: 22/NOV/2016
     Route: 048
     Dates: start: 20161122, end: 20161213
  28. CAPECITABINE [Suspect]
     Active Substance: CAPECITABINE
     Indication: Triple negative breast cancer
     Dosage: 1000 MG, EVERY 4 DAYS
     Route: 048
     Dates: start: 20161122, end: 20161213
  29. CAPECITABINE [Suspect]
     Active Substance: CAPECITABINE
     Dosage: 1500 MG, 2X/DAY
     Route: 048
     Dates: start: 20161213, end: 20161216
  30. CAPECITABINE [Suspect]
     Active Substance: CAPECITABINE
     Dosage: 13/DEC/2016
     Route: 048
     Dates: start: 20161213, end: 20161216
  31. HYALURONIDASE [Suspect]
     Active Substance: HYALURONIDASE
     Indication: Breast cancer metastatic
     Dosage: 600 MG, EVERY 3 WEEKS
     Route: 058
     Dates: start: 20151124, end: 20151221
  32. HYALURONIDASE [Suspect]
     Active Substance: HYALURONIDASE
     Indication: HER2 positive breast cancer
     Dosage: 600 MG, EVERY 3 WEEKS
     Route: 058
     Dates: start: 20160531, end: 20161105
  33. HYALURONIDASE [Suspect]
     Active Substance: HYALURONIDASE
     Dosage: UNK
     Route: 058
     Dates: start: 20160531
  34. HYALURONIDASE (HUMAN RECOMBINANT) [Suspect]
     Active Substance: HYALURONIDASE (HUMAN RECOMBINANT)
     Indication: HER2 positive breast cancer
     Dosage: 600 MG, EVERY 3 WEEKS
     Route: 065
     Dates: start: 20151124, end: 20151221
  35. HYALURONIDASE (HUMAN RECOMBINANT) [Suspect]
     Active Substance: HYALURONIDASE (HUMAN RECOMBINANT)
     Dosage: UNK
     Route: 065
     Dates: start: 20160531, end: 20161115
  36. SODIUM HYALURONATE [Suspect]
     Active Substance: HYALURONATE SODIUM
     Indication: Breast cancer metastatic
     Dosage: 600 MG, 1X3 WEEKS
     Route: 058
     Dates: start: 20151124, end: 20151221
  37. SODIUM HYALURONATE [Suspect]
     Active Substance: HYALURONATE SODIUM
     Dosage: 600 MG, 1X3 WEEKS
     Route: 065
     Dates: start: 20160531, end: 20161115
  38. TAMOXIFEN [Suspect]
     Active Substance: TAMOXIFEN
     Indication: Breast cancer metastatic
     Dosage: 600 MG, WEEKLY
     Route: 048
  39. TAMOXIFEN [Suspect]
     Active Substance: TAMOXIFEN
     Indication: HER2 positive breast cancer
     Dosage: 20 MG, QD TIME INTERVAL BETWEEN BEGINNING OF DRUG
     Route: 048
     Dates: start: 20160712, end: 20160802
  40. TAMOXIFEN [Suspect]
     Active Substance: TAMOXIFEN
     Route: 065
  41. TRASTUZUMAB [Suspect]
     Active Substance: TRASTUZUMAB
     Indication: Breast cancer metastatic
     Dosage: 600 MG, EVERY 3 WEEKS
     Route: 058
     Dates: start: 20151124, end: 20151221
  42. TRASTUZUMAB [Suspect]
     Active Substance: TRASTUZUMAB
     Dosage: 31/MAY/2016
     Route: 058
     Dates: start: 20160531, end: 20161115
  43. CALCIUM CARBONATE\CHOLECALCIFEROL [Concomitant]
     Active Substance: CALCIUM CARBONATE\CHOLECALCIFEROL
     Indication: Product used for unknown indication
     Dosage: 1. G, 1X/DAY
     Route: 048
     Dates: start: 20101221, end: 201511
  44. CALCIUM CARBONATE\CHOLECALCIFEROL [Concomitant]
     Active Substance: CALCIUM CARBONATE\CHOLECALCIFEROL
     Dosage: 1 DF, 1X/DAY
     Route: 048
     Dates: start: 20101221
  45. CHOLECALCIFEROL [Concomitant]
     Active Substance: CHOLECALCIFEROL
     Dosage: 1.5 G, 1X/DAY
     Route: 048
     Dates: start: 20101221
  46. ENOXAPARIN [Concomitant]
     Active Substance: ENOXAPARIN
     Indication: Thrombosis prophylaxis
     Dosage: 20 MG, 1X/DAY
     Route: 058
     Dates: start: 20160106
  47. ENOXAPARIN [Concomitant]
     Active Substance: ENOXAPARIN
     Indication: Embolism venous
     Dosage: 20 MG, 1X/DAY
     Route: 058
     Dates: start: 20160104, end: 20160106
  48. OMEPRAZOLE [Concomitant]
     Active Substance: OMEPRAZOLE
     Dosage: 20 MG, 1X/DAY
     Route: 048
     Dates: end: 20170530
  49. OMEPRAZOLE [Concomitant]
     Active Substance: OMEPRAZOLE
     Dosage: 1 DF
  50. OMEPRAZOLE [Concomitant]
     Active Substance: OMEPRAZOLE
     Route: 048
     Dates: start: 20170530

REACTIONS (61)
  - Death [Fatal]
  - Balance disorder [Not Recovered/Not Resolved]
  - Pyrexia [Recovered/Resolved]
  - Dyspnoea [Recovered/Resolved]
  - Asthenia [Not Recovered/Not Resolved]
  - Blood bilirubin increased [Recovered/Resolved]
  - Pain [Recovered/Resolved]
  - Vomiting [Recovered/Resolved]
  - Blood creatinine increased [Recovered/Resolved]
  - C-reactive protein increased [Unknown]
  - Sinusitis [Recovered/Resolved]
  - Ascites [Not Recovered/Not Resolved]
  - Sensory loss [Not Recovered/Not Resolved]
  - Headache [Unknown]
  - Constipation [Recovered/Resolved]
  - Protein total decreased [Recovered/Resolved]
  - Aspartate aminotransferase increased [Recovered/Resolved]
  - Fatigue [Unknown]
  - Blood glucose increased [Recovered/Resolved]
  - Blood urea increased [Unknown]
  - Abdominal pain upper [Unknown]
  - Depressed mood [Unknown]
  - Urinary tract infection [Unknown]
  - Hypernatraemia [Recovered/Resolved]
  - Hypokalaemia [Recovered/Resolved]
  - Fatigue [Recovered/Resolved]
  - Musculoskeletal stiffness [Not Recovered/Not Resolved]
  - Injection site pain [Recovered/Resolved]
  - Nausea [Recovered/Resolved]
  - Ill-defined disorder [Unknown]
  - Vomiting [Recovered/Resolved]
  - Haemoglobin decreased [Not Recovered/Not Resolved]
  - Neutrophil count increased [Recovered/Resolved]
  - Hypertension [Recovered/Resolved with Sequelae]
  - Vomiting [Recovered/Resolved]
  - Blood alkaline phosphatase increased [Recovered/Resolved with Sequelae]
  - Agitation [Recovered/Resolved]
  - Alanine aminotransferase increased [Recovered/Resolved]
  - Diarrhoea [Recovered/Resolved]
  - Crohn^s disease [Not Recovered/Not Resolved]
  - Blood phosphorus increased [Recovered/Resolved]
  - Irritability [Recovered/Resolved]
  - Muscle twitching [Unknown]
  - Crying [Unknown]
  - Tremor [Unknown]
  - Sensory disturbance [Not Recovered/Not Resolved]
  - Pain [Recovered/Resolved]
  - Insomnia [Unknown]
  - Rectal haemorrhage [Recovering/Resolving]
  - White blood cell count increased [Recovered/Resolved]
  - Lymphopenia [Recovered/Resolved with Sequelae]
  - Malaise [Not Recovered/Not Resolved]
  - Neck pain [Recovered/Resolved]
  - Insomnia [Unknown]
  - Ill-defined disorder [Unknown]
  - Vomiting [Recovered/Resolved]
  - Back pain [Recovered/Resolved]
  - Cerebral haemorrhage [Recovered/Resolved with Sequelae]
  - Colitis ulcerative [Recovered/Resolved]
  - Neoplasm progression [Unknown]
  - Product administered at inappropriate site [Unknown]

NARRATIVE: CASE EVENT DATE: 20151124
